FAERS Safety Report 20142491 (Version 1)
Quarter: 2021Q4

REPORT INFORMATION
  Report Type: Spontaneous
  Country: US (occurrence: None)
  Receive Date: 20211202
  Receipt Date: 20211202
  Transmission Date: 20220303
  Serious: No
  Sender: FDA-Public Use
  Company Number: US-ROCHE-2918264

PATIENT
  Age: 16 Year
  Sex: Female

DRUGS (1)
  1. EVRYSDI [Suspect]
     Active Substance: RISDIPLAM
     Indication: Product used for unknown indication
     Dosage: ONGOING: YES
     Route: 065
     Dates: start: 20210507

REACTIONS (3)
  - Hypertension [Unknown]
  - Renal function test abnormal [Unknown]
  - Fluid retention [Unknown]

NARRATIVE: CASE EVENT DATE: 20210818
